FAERS Safety Report 15908780 (Version 1)
Quarter: 2019Q1

REPORT INFORMATION
  Report Type: Spontaneous
  Country: US (occurrence: US)
  Receive Date: 20190204
  Receipt Date: 20190204
  Transmission Date: 20190417
  Serious: No
  Sender: FDA-Public Use
  Company Number: US-ABBVIE-18K-163-2298908-00

PATIENT
  Age: 55 Year
  Sex: Female

DRUGS (6)
  1. PREDNISONE. [Suspect]
     Active Substance: PREDNISONE
     Indication: PRODUCT USED FOR UNKNOWN INDICATION
     Route: 065
     Dates: start: 201712
  2. HUMIRA [Suspect]
     Active Substance: ADALIMUMAB
     Indication: RHEUMATOID ARTHRITIS
     Route: 058
     Dates: start: 2016
  3. XELJANZ XR [Suspect]
     Active Substance: TOFACITINIB CITRATE
     Indication: PRODUCT USED FOR UNKNOWN INDICATION
     Route: 065
     Dates: start: 2017, end: 20171130
  4. ALEVE [Suspect]
     Active Substance: NAPROXEN SODIUM
     Indication: PRODUCT USED FOR UNKNOWN INDICATION
     Route: 065
  5. METHOTREXATE. [Suspect]
     Active Substance: METHOTREXATE
     Indication: RHEUMATOID ARTHRITIS
     Route: 065
     Dates: start: 2016
  6. XELJANZ XR [Suspect]
     Active Substance: TOFACITINIB CITRATE
     Route: 065
     Dates: start: 201801

REACTIONS (13)
  - Pain [Unknown]
  - Weight fluctuation [Unknown]
  - Rheumatoid arthritis [Recovering/Resolving]
  - Drug ineffective [Unknown]
  - Therapeutic response shortened [Recovering/Resolving]
  - Pain in extremity [Not Recovered/Not Resolved]
  - Sinusitis [Recovered/Resolved]
  - Drug effect decreased [Unknown]
  - Cough [Unknown]
  - Musculoskeletal stiffness [Not Recovered/Not Resolved]
  - Immunosuppression [Unknown]
  - Peripheral swelling [Not Recovered/Not Resolved]
  - Joint swelling [Unknown]

NARRATIVE: CASE EVENT DATE: 201712
